APPROVED DRUG PRODUCT: MYCOPHENOLATE MOFETIL
Active Ingredient: MYCOPHENOLATE MOFETIL
Strength: 500MG
Dosage Form/Route: TABLET;ORAL
Application: A090661 | Product #001
Applicant: JUBILANT CADISTA PHARMACEUTICALS INC
Approved: Dec 15, 2014 | RLD: No | RS: No | Type: DISCN